FAERS Safety Report 8566287-9 (Version None)
Quarter: 2012Q3

REPORT INFORMATION
  Report Type: 
  Country: None (occurrence: None)
  Receive Date: 20120803
  Receipt Date: 20111026
  Transmission Date: 20120928
  Serious: No
  Sender: FDA-Public Use
  Company Number: US-ABBOTT-11P-163-0869314-00

PATIENT
  Sex: Male
  Weight: 71.278 kg

DRUGS (8)
  1. LASIX [Concomitant]
     Indication: CARDIAC FAILURE CONGESTIVE
  2. NIASPAN [Suspect]
     Indication: BLOOD CHOLESTEROL
     Dates: start: 20111001
  3. MULTI-VITAMIN [Concomitant]
     Indication: VITAMIN SUPPLEMENTATION
  4. PLAVIX [Concomitant]
     Indication: STENT PLACEMENT
  5. COREG [Concomitant]
     Indication: HEART RATE
  6. PLAVIX [Concomitant]
     Indication: CARDIAC DISORDER
  7. POTASSIUM CHLORIDE [Concomitant]
     Indication: MINERAL SUPPLEMENTATION
  8. LOSARTAN POTASSIUM [Concomitant]
     Indication: HYPERTENSION

REACTIONS (4)
  - PRURITUS [None]
  - GOUT [None]
  - FLUSHING [None]
  - LOCALISED INFECTION [None]
